FAERS Safety Report 4436957-2 (Version None)
Quarter: 2004Q3

REPORT INFORMATION
  Report Type: 
  Country: None (occurrence: None)
  Receive Date: 20040830
  Receipt Date: 20030818
  Transmission Date: 20050211
  Serious: No
  Sender: FDA-Public Use
  Company Number: US-GLAXOSMITHKLINE-A0422354A

PATIENT
  Age: 67 Year
  Sex: Female

DRUGS (2)
  1. BECONASE [Suspect]
     Indication: POLYP
     Route: 045
     Dates: start: 20030701
  2. BECONASE [Suspect]
     Indication: CHRONIC SINUSITIS
     Route: 045

REACTIONS (7)
  - DRUG INEFFECTIVE [None]
  - EAR DISORDER [None]
  - EAR PAIN [None]
  - NASAL DISCOMFORT [None]
  - NASOPHARYNGITIS [None]
  - RHINORRHOEA [None]
  - SNEEZING [None]
